FAERS Safety Report 6039646-6 (Version None)
Quarter: 2009Q1

REPORT INFORMATION
  Report Type: 
  Country: None (occurrence: None)
  Receive Date: 20090116
  Receipt Date: 20090114
  Transmission Date: 20090719
  Serious: Yes (Other)
  Sender: FDA-Public Use
  Company Number: JP-ASTRAZENECA-2009AP00526

PATIENT
  Age: 41 Year
  Sex: Male

DRUGS (2)
  1. OMEPRAL [Suspect]
     Route: 048
     Dates: start: 20060201, end: 20060201
  2. OMEPRAL [Suspect]
     Route: 048
     Dates: start: 20041001, end: 20060301

REACTIONS (1)
  - LIVER DISORDER [None]
